FAERS Safety Report 9195258 (Version 1)
Quarter: 2013Q1

REPORT INFORMATION
  Report Type: Spontaneous
  Country: US (occurrence: US)
  Receive Date: 20130328
  Receipt Date: 20130328
  Transmission Date: 20140127
  Serious: No
  Sender: FDA-Public Use
  Company Number: US-ALLERGAN-1212054US

PATIENT
  Age: 73 Year
  Sex: Female

DRUGS (3)
  1. LATISSE 0.03% [Suspect]
     Indication: GROWTH OF EYELASHES
     Dosage: 2 GTT, QHS
     Route: 061
  2. LUBRICATING EYE DROP [Concomitant]
     Indication: EYE LUBRICATION THERAPY
     Dosage: UNK, PRN
     Route: 047
  3. COSMETICS [Concomitant]

REACTIONS (3)
  - Wrong technique in drug usage process [Unknown]
  - Trichorrhexis [Not Recovered/Not Resolved]
  - Madarosis [Not Recovered/Not Resolved]
